FAERS Safety Report 6099535-8 (Version None)
Quarter: 2009Q1

REPORT INFORMATION
  Report Type: 
  Country: None (occurrence: None)
  Receive Date: 20090226
  Receipt Date: 20090212
  Transmission Date: 20090719
  Serious: Yes (Hospitalization)
  Sender: FDA-Public Use
  Company Number: DAV-AE-MTX-09-006

PATIENT
  Age: 46 Year
  Sex: Female

DRUGS (2)
  1. METHOTREXATE [Suspect]
     Indication: ARTHRITIS
     Dosage: 7.5 MG/WK
  2. CORTICOSTEROIDS [Concomitant]

REACTIONS (11)
  - C-REACTIVE PROTEIN INCREASED [None]
  - CIRCULATING ANTICOAGULANT POSITIVE [None]
  - CORONARY ARTERY STENOSIS [None]
  - CREATININE RENAL CLEARANCE DECREASED [None]
  - HYPERHOMOCYSTEINAEMIA [None]
  - ILIAC ARTERY STENOSIS [None]
  - RED BLOOD CELL SEDIMENTATION RATE INCREASED [None]
  - RENAL ARTERY STENOSIS [None]
  - RHEUMATOID FACTOR POSITIVE [None]
  - SUBCLAVIAN ARTERY STENOSIS [None]
  - VERTEBRAL ARTERY STENOSIS [None]
